FAERS Safety Report 6759621-3 (Version None)
Quarter: 2010Q2

REPORT INFORMATION
  Report Type: 
  Country: None (occurrence: None)
  Receive Date: 20100608
  Receipt Date: 20100528
  Transmission Date: 20101027
  Serious: Yes (Hospitalization)
  Sender: FDA-Public Use
  Company Number: CA-BIOGENIDEC-2010BI016893

PATIENT
  Age: 51 Year
  Sex: Female

DRUGS (5)
  1. TYSABRI [Suspect]
     Indication: DRUG USE FOR UNKNOWN INDICATION
     Route: 042
     Dates: start: 20081230, end: 20100501
  2. VITAMIN D [Concomitant]
  3. BACLOFEN [Concomitant]
  4. ACCUPRIL [Concomitant]
  5. TYLENOL [Concomitant]

REACTIONS (1)
  - APLASIA PURE RED CELL [None]
